FAERS Safety Report 5141901-9 (Version None)
Quarter: 2006Q4

REPORT INFORMATION
  Report Type: 
  Country: None (occurrence: None)
  Receive Date: 20060919
  Receipt Date: 20060609
  Transmission Date: 20070319
  Serious: No
  Sender: FDA-Public Use
  Company Number: 2006US001314

PATIENT
  Age: 73 Year
  Sex: Male
  Weight: 81.6 kg

DRUGS (8)
  1. VESICARE [Suspect]
     Indication: POLLAKIURIA
  2. SANCTURA [Suspect]
     Indication: POLLAKIURIA
     Dosage: 20 MG, BID, ORAL
     Route: 048
     Dates: start: 20060501, end: 20060601
  3. WELLBUTRIN [Concomitant]
  4. HYDROCHLOROTHIAZID [Concomitant]
  5. ADALAT [Concomitant]
  6. REMERON [Concomitant]
  7. SIMVASTATIN [Concomitant]
  8. COSOPT (DORZOLAMIDE) EYE DROP [Concomitant]

REACTIONS (2)
  - BLOOD PRESSURE INCREASED [None]
  - DRUG INEFFECTIVE [None]
